FAERS Safety Report 7007840-3 (Version None)
Quarter: 2010Q3

REPORT INFORMATION
  Report Type: 
  Country: None (occurrence: None)
  Receive Date: 20100922
  Receipt Date: 20100914
  Transmission Date: 20110219
  Serious: Yes (Hospitalization)
  Sender: FDA-Public Use
  Company Number: NL-ROCHE-727110

PATIENT
  Sex: Female

DRUGS (9)
  1. BEVACIZUMAB [Suspect]
     Dosage: LAST DOSE PRIOR TO SAE: 4 MAY 2010
     Route: 042
     Dates: start: 20081113
  2. CAPECITABINE [Suspect]
     Dosage: LAST DOSE PRIOR TO SAE: 18-08-2010, DISCONTINUED PERMANENTLY.
     Route: 048
     Dates: start: 20081113, end: 20100826
  3. TAXOL [Suspect]
     Dosage: LAST DOSE PRIOR TO SAE: 22 APRIL 2009
     Route: 042
     Dates: start: 20081113
  4. ACETYLCYSTEINE [Concomitant]
     Dates: end: 20100824
  5. EFFEXOR [Concomitant]
  6. METOPROLOL [Concomitant]
     Dosage: DRUG: METOPROLOL ZOC
  7. AMLODIPINE [Concomitant]
     Dates: end: 20100826
  8. LISINOPRIL [Concomitant]
  9. HCT [Concomitant]

REACTIONS (2)
  - ANGINA PECTORIS [None]
  - CORONARY ARTERY DISEASE [None]
